FAERS Safety Report 9209357 (Version 1)
Quarter: 2013Q1

REPORT INFORMATION
  Report Type: Spontaneous
  Country: US (occurrence: None)
  Receive Date: 20120817
  Receipt Date: 20120817
  Transmission Date: 20140127
  Serious: Yes (Other)
  Sender: FDA-Public Use
  Company Number: 135813

PATIENT
  Age: 42 Year
  Sex: Male
  Weight: 81 kg

DRUGS (1)
  1. CYTARABINE [Suspect]
     Indication: NON-HODGKIN^S LYMPHOMA
     Dates: start: 20120426

REACTIONS (1)
  - Febrile neutropenia [None]
